FAERS Safety Report 24906362 (Version 2)
Quarter: 2025Q1

REPORT INFORMATION
  Report Type: Spontaneous
  Country: IN (occurrence: IN)
  Receive Date: 20250130
  Receipt Date: 20250306
  Transmission Date: 20250408
  Serious: Yes (Death, Other)
  Sender: PFIZER
  Company Number: IN-PFIZER INC-PV202500010485

PATIENT
  Age: 37 Year
  Sex: Female

DRUGS (1)
  1. CRIZOTINIB [Suspect]
     Active Substance: CRIZOTINIB
     Indication: Non-small cell lung cancer stage IV
     Dosage: 250 MG, 2X/DAY (FOR 3 MONTHS)
     Route: 048

REACTIONS (4)
  - Death [Fatal]
  - Loss of consciousness [Unknown]
  - Metastases to lymph nodes [Unknown]
  - Cough [Unknown]

NARRATIVE: CASE EVENT DATE: 20250212
